FAERS Safety Report 15570240 (Version 5)
Quarter: 2021Q1

REPORT INFORMATION
  Report Type: Other
  Country: DE (occurrence: DE)
  Receive Date: 20181031
  Receipt Date: 20210108
  Transmission Date: 20210419
  Serious: Yes (Other)
  Sender: FDA-Public Use
  Company Number: DE-ROCHE-2167967

PATIENT
  Age: 33 Year
  Sex: Female

DRUGS (7)
  1. OCREVUS [Suspect]
     Active Substance: OCRELIZUMAB
     Route: 042
     Dates: start: 20190823
  2. CORTISONE [Suspect]
     Active Substance: CORTISONE
     Indication: PROPHYLAXIS
     Route: 065
  3. OCREVUS [Suspect]
     Active Substance: OCRELIZUMAB
     Indication: RELAPSING-REMITTING MULTIPLE SCLEROSIS
     Dosage: SECOND DOSE RECEIVED ON 10/AUG/2018
     Route: 042
     Dates: start: 20180727
  4. OCREVUS [Suspect]
     Active Substance: OCRELIZUMAB
     Route: 042
     Dates: start: 202002
  5. OCREVUS [Suspect]
     Active Substance: OCRELIZUMAB
     Route: 042
     Dates: start: 202008
  6. OCREVUS [Suspect]
     Active Substance: OCRELIZUMAB
     Route: 042
     Dates: start: 201902
  7. FUROSEMID [Concomitant]
     Active Substance: FUROSEMIDE
     Dosage: AS REQUIRED.

REACTIONS (24)
  - Asthenia [Recovering/Resolving]
  - Gastritis [Not Recovered/Not Resolved]
  - Varicella [Recovered/Resolved]
  - Weight increased [Not Recovered/Not Resolved]
  - Dysphonia [Recovering/Resolving]
  - Wisdom teeth removal [Recovered/Resolved]
  - Influenza [Recovered/Resolved]
  - Tooth deposit [Not Recovered/Not Resolved]
  - General physical health deterioration [Recovering/Resolving]
  - Herpes pharyngitis [Recovered/Resolved]
  - Headache [Recovered/Resolved]
  - Rash [Recovered/Resolved]
  - Alopecia [Not Recovered/Not Resolved]
  - Pain in extremity [Recovered/Resolved]
  - Listless [Unknown]
  - Constipation [Not Recovered/Not Resolved]
  - Body temperature increased [Recovered/Resolved]
  - Multiple sclerosis relapse [Recovering/Resolving]
  - Fatigue [Recovering/Resolving]
  - Blood pressure increased [Recovered/Resolved]
  - Tremor [Recovered/Resolved]
  - Dysphagia [Recovered/Resolved]
  - Inflammation [Recovered/Resolved]
  - Gingival bleeding [Not Recovered/Not Resolved]

NARRATIVE: CASE EVENT DATE: 20180727
